FAERS Safety Report 6654854-9 (Version None)
Quarter: 2010Q1

REPORT INFORMATION
  Report Type: 
  Country: None (occurrence: None)
  Receive Date: 20100329
  Receipt Date: 20100316
  Transmission Date: 20100710
  Serious: Yes (Hospitalization)
  Sender: FDA-Public Use
  Company Number: US-BIOGENIDEC-2010BI004043

PATIENT
  Age: 44 Year
  Sex: Male
  Weight: 104 kg

DRUGS (1)
  1. AVONEX [Suspect]
     Indication: MULTIPLE SCLEROSIS
     Route: 030
     Dates: start: 20050101

REACTIONS (4)
  - ASTHENIA [None]
  - DYSPNOEA [None]
  - PNEUMONIA [None]
  - SLEEP APNOEA SYNDROME [None]
